FAERS Safety Report 4579300-0 (Version None)
Quarter: 2005Q1

REPORT INFORMATION
  Report Type: 
  Country: None (occurrence: None)
  Receive Date: 20050209
  Receipt Date: 20050120
  Transmission Date: 20050727
  Serious: Yes (Hospitalization, Disabling, Other)
  Sender: FDA-Public Use
  Company Number: USA040771721

PATIENT
  Age: 27 Year
  Sex: Male
  Weight: 123 kg

DRUGS (4)
  1. KEFZOL [Suspect]
     Indication: SINUSITIS
     Dosage: 1.5 G
     Dates: start: 20020921, end: 20020921
  2. TEQUIN [Concomitant]
  3. FLONASE [Concomitant]
  4. METHYLPREDNISOLONE [Concomitant]

REACTIONS (24)
  - ANTINUCLEAR ANTIBODY POSITIVE [None]
  - ASTHENIA [None]
  - BURNING SENSATION [None]
  - CONFUSIONAL STATE [None]
  - DERMATOMYOSITIS [None]
  - DIFFICULTY IN WALKING [None]
  - DYSSTASIA [None]
  - ERYTHEMA [None]
  - FALL [None]
  - HYPERTENSION [None]
  - IMPAIRED WORK ABILITY [None]
  - INJECTION SITE INDURATION [None]
  - INJECTION SITE PAIN [None]
  - LACRIMATION INCREASED [None]
  - MEDICATION ERROR [None]
  - NASAL DISCOMFORT [None]
  - PAIN [None]
  - PELVIC MASS [None]
  - POLYMYOSITIS [None]
  - RASH MACULO-PAPULAR [None]
  - RETCHING [None]
  - RHABDOMYOLYSIS [None]
  - RHINORRHOEA [None]
  - WEIGHT DECREASED [None]
